FAERS Safety Report 10950616 (Version 1)
Quarter: 2015Q1

REPORT INFORMATION
  Report Type: Spontaneous
  Country: US (occurrence: US)
  Receive Date: 20150324
  Receipt Date: 20150324
  Transmission Date: 20150721
  Serious: No
  Sender: FDA-Public Use
  Company Number: US-GLAXOSMITHKLINE-US2015GSK037576

PATIENT
  Sex: Female

DRUGS (1)
  1. FLONASE [Suspect]
     Active Substance: FLUTICASONE PROPIONATE
     Indication: PRODUCT USED FOR UNKNOWN INDICATION
     Dosage: UNK

REACTIONS (7)
  - Oropharyngeal discomfort [Unknown]
  - Sneezing [Unknown]
  - Rhinalgia [Unknown]
  - Epistaxis [Not Recovered/Not Resolved]
  - Ear discomfort [Unknown]
  - Bloody discharge [Unknown]
  - Musculoskeletal discomfort [Unknown]
